FAERS Safety Report 24268852 (Version 1)
Quarter: 2024Q3

REPORT INFORMATION
  Report Type: Spontaneous
  Country: US (occurrence: None)
  Receive Date: 20240829
  Receipt Date: 20240829
  Transmission Date: 20241017
  Serious: Yes (Hospitalization)
  Sender: Public
  Company Number: None

PATIENT
  Sex: Female

DRUGS (3)
  1. BOSULIF [Suspect]
     Active Substance: BOSUTINIB MONOHYDRATE
     Indication: Orthostatic hypotension
     Dosage: FREQUENCY : TWICE A DAY;?
     Route: 048
     Dates: start: 202201
  2. BOSULIF [Concomitant]
  3. TYMLOS PF PEN [Concomitant]

REACTIONS (4)
  - Fall [None]
  - Unresponsive to stimuli [None]
  - Face injury [None]
  - Concussion [None]
